FAERS Safety Report 9170704 (Version 1)
Quarter: 2013Q1

REPORT INFORMATION
  Report Type: Report from Study
  Country: US (occurrence: US)
  Receive Date: 20130319
  Receipt Date: 20130319
  Transmission Date: 20140127
  Serious: Yes (Hospitalization, Other)
  Sender: FDA-Public Use
  Company Number: US-ASTRAZENECA-2013SE16689

PATIENT
  Age: 52 Year
  Sex: Male
  Weight: 97.5 kg

DRUGS (9)
  1. LISINOPRIL [Suspect]
     Indication: ANXIETY
     Route: 048
  2. TOPROL  XL [Suspect]
     Indication: BLOOD PRESSURE ABNORMAL
     Route: 048
  3. SEROQUEL [Suspect]
     Indication: BIPOLAR DISORDER
     Route: 048
     Dates: start: 2012
  4. OMEPRAZOLE [Suspect]
     Indication: GASTROOESOPHAGEAL REFLUX DISEASE
     Route: 048
  5. METFORMIN [Concomitant]
     Indication: DIABETES MELLITUS
     Route: 048
  6. AMLODIPINE [Concomitant]
     Route: 048
  7. GLIPIZIDE [Concomitant]
     Indication: DIABETES MELLITUS
     Route: 048
  8. PRAVASTATIN [Concomitant]
     Indication: DYSPEPSIA
     Route: 048
  9. PRAVASTATIN [Concomitant]
     Indication: GASTROOESOPHAGEAL REFLUX DISEASE
     Route: 048

REACTIONS (4)
  - Loss of consciousness [Unknown]
  - Fall [Unknown]
  - Vomiting [Unknown]
  - Dizziness [Unknown]
